FAERS Safety Report 24396244 (Version 7)
Quarter: 2024Q4

REPORT INFORMATION
  Report Type: Spontaneous
  Country: US (occurrence: US)
  Receive Date: 20241004
  Receipt Date: 20241218
  Transmission Date: 20250115
  Serious: Yes (Other)
  Sender: PFIZER
  Company Number: US-PFIZER INC-202400265956

PATIENT
  Age: 66 Year
  Sex: Female

DRUGS (1)
  1. GENOTROPIN [Suspect]
     Active Substance: SOMATROPIN
     Dosage: 0.4 MG, DAILY

REACTIONS (10)
  - Multiple sclerosis [Not Recovered/Not Resolved]
  - Brain neoplasm [Not Recovered/Not Resolved]
  - Device use error [Unknown]
  - Drug dose omission by device [Unknown]
  - Device material issue [Unknown]
  - Device breakage [Unknown]
  - Device information output issue [Unknown]
  - Device leakage [Unknown]
  - Device connection issue [Unknown]
  - Device malfunction [Unknown]
